FAERS Safety Report 18216549 (Version 1)
Quarter: 2020Q3

REPORT INFORMATION
  Report Type: Spontaneous
  Country: FR (occurrence: FR)
  Receive Date: 20200901
  Receipt Date: 20200901
  Transmission Date: 20201103
  Serious: Yes (Hospitalization)
  Sender: FDA-Public Use
  Company Number: FR-SUN PHARMACEUTICAL INDUSTRIES LTD-2020RR-259846

PATIENT
  Age: 60 Year
  Sex: Female

DRUGS (2)
  1. PARACETAMOL [Suspect]
     Active Substance: ACETAMINOPHEN
     Indication: PAIN
     Dosage: 4 G MAXIMUM PAR JOUR ; AS NECESSARY
     Route: 048
     Dates: start: 202007, end: 20200721
  2. CLAMOXYL 1 G, COMPRIME DISPERSIBLE [Suspect]
     Active Substance: AMOXICILLIN
     Indication: URINARY TRACT INFECTION
     Dosage: 3 GRAM, DAILY
     Route: 048
     Dates: start: 20200717, end: 20200720

REACTIONS (2)
  - Hepatitis [Recovering/Resolving]
  - Thrombocytopenia [Recovered/Resolved]

NARRATIVE: CASE EVENT DATE: 20200721
